FAERS Safety Report 18443965 (Version 3)
Quarter: 2020Q4

REPORT INFORMATION
  Report Type: Spontaneous
  Country: US (occurrence: US)
  Receive Date: 20201030
  Receipt Date: 20201211
  Transmission Date: 20210114
  Serious: Yes (Hospitalization, Other)
  Sender: FDA-Public Use
  Company Number: US-TEVA-2020-US-1842932

PATIENT
  Age: 71 Year
  Sex: Female

DRUGS (16)
  1. VENLAFAXINE HEL 150MG [Concomitant]
     Indication: MENOPAUSE
  2. LAMOTRIGINE 200MG [Concomitant]
     Active Substance: LAMOTRIGINE
     Indication: BIPOLAR DISORDER
     Dosage: 1 TAB IN THE MORNING AND 1 TAB BEFORE BAD
  3. QUETIAPINE 25 MG [Concomitant]
     Active Substance: QUETIAPINE
     Indication: HALLUCINATION
     Dosage: 1 TAB IN THE MORNING
  4. VENLAFAXINE HEL 150MG [Concomitant]
     Indication: DEPRESSION
     Dosage: 1 TAB IN THE MORNING
  5. AUSTEDO [Suspect]
     Active Substance: DEUTETRABENAZINE
     Indication: TARDIVE DYSKINESIA
     Dosage: 12 MILLIGRAM DAILY;
     Route: 048
     Dates: start: 20200718
  6. LINSINOPRIL 10MG [Concomitant]
     Indication: BLOOD PRESSURE MEASUREMENT
     Dosage: 1 TAB IN THE MORNING
  7. LAMOTRIGINE 200MG [Concomitant]
     Active Substance: LAMOTRIGINE
     Indication: SEIZURE
  8. QUETIAPINE 100MG [Concomitant]
     Active Substance: QUETIAPINE
     Indication: HALLUCINATION
     Dosage: 1 TAB BEFORE BAD
  9. VITMAIN B12 1000MCG [Concomitant]
     Dosage: DAILY
  10. VITAMIN C [Concomitant]
     Active Substance: ASCORBIC ACID
     Dosage: DAILY
  11. CLOPIDOGREL BISULFATE 75MG [Concomitant]
     Indication: BLOOD DISORDER
     Dosage: 1 TAB IN THE MORNING
  12. AATORVASTATIN 80MG [Concomitant]
     Indication: BLOOD CHOLESTEROL
     Dosage: 1 TAB BEFORE BED
  13. CALCIUM 1200MG + D3 [Concomitant]
     Dosage: DAILY
  14. FISH OIL 1200MG [Concomitant]
     Dosage: DAILY
  15. MEMANTINE 10 MG [Concomitant]
     Indication: UNEVALUABLE EVENT
     Dosage: 1 TAB IN THE MORNING AND 1 TAB BEFORE BAD
  16. METFORMIN 500MG [Concomitant]
     Active Substance: METFORMIN HYDROCHLORIDE
     Indication: BLOOD GLUCOSE
     Dosage: 1 TAB IN THE MORNING AND 1 TAB BEFORE BAD

REACTIONS (2)
  - Cerebrovascular accident [Unknown]
  - Dyskinesia [Not Recovered/Not Resolved]

NARRATIVE: CASE EVENT DATE: 202007
